FAERS Safety Report 5038143-4 (Version None)
Quarter: 2006Q2

REPORT INFORMATION
  Report Type: 
  Country: None (occurrence: None)
  Receive Date: 20060626
  Receipt Date: 20060609
  Transmission Date: 20061013
  Serious: Yes (Other)
  Sender: FDA-Public Use
  Company Number: S06-USA-02271-01

PATIENT
  Age: 78 Year
  Sex: Female

DRUGS (3)
  1. TIAZAC [Suspect]
     Dosage: 360 MG QD PO
     Route: 048
  2. CATAPRES [Suspect]
  3. AVAPRO [Suspect]

REACTIONS (2)
  - ILL-DEFINED DISORDER [None]
  - RENAL DISORDER [None]
